FAERS Safety Report 9685276 (Version 1)
Quarter: 2013Q4

REPORT INFORMATION
  Report Type: Spontaneous
  Country: IT (occurrence: IT)
  Receive Date: 20131113
  Receipt Date: 20131113
  Transmission Date: 20140711
  Serious: Yes (Other)
  Sender: FDA-Public Use
  Company Number: IT-JNJFOC-20131104532

PATIENT
  Age: 52 Year
  Sex: Female
  Weight: 66 kg

DRUGS (4)
  1. DOXORUBICIN HYDROCHLORIDE (CAELYX) [Suspect]
     Indication: BREAST CANCER
     Route: 042
     Dates: start: 20131010, end: 20131010
  2. THEOPHYLLINE ANHYDROUS [Concomitant]
     Indication: ASTHMA
     Route: 048
  3. HYDROCORTISONE [Concomitant]
     Indication: PREMEDICATION
     Route: 065
  4. CHLORPHENAMINE [Concomitant]
     Indication: PREMEDICATION
     Route: 065

REACTIONS (6)
  - Asthenia [Recovered/Resolved]
  - Dyspnoea [Recovered/Resolved]
  - Paraesthesia [Recovered/Resolved]
  - Skin reaction [Recovered/Resolved]
  - Flushing [Recovered/Resolved]
  - Infusion related reaction [Recovered/Resolved]
